FAERS Safety Report 7829879-8 (Version None)
Quarter: 2011Q4

REPORT INFORMATION
  Report Type: 
  Country: None (occurrence: None)
  Receive Date: 20111021
  Receipt Date: 20111010
  Transmission Date: 20120403
  Serious: No
  Sender: FDA-Public Use
  Company Number: CN-JNJFOC-20111004758

PATIENT
  Age: 73 Year
  Sex: Male

DRUGS (2)
  1. MORPHINE [Concomitant]
     Route: 065
  2. DURAGESIC-100 [Suspect]
     Indication: OESOPHAGEAL CARCINOMA
     Dosage: 1/4 OF THE PATCH ON 9TH OCTOBER
     Route: 062
     Dates: start: 20111009

REACTIONS (3)
  - WRONG TECHNIQUE IN DRUG USAGE PROCESS [None]
  - DRUG INEFFECTIVE [None]
  - APPLICATION SITE PRURITUS [None]
